FAERS Safety Report 22203750 (Version 1)
Quarter: 2023Q2

REPORT INFORMATION
  Report Type: Spontaneous
  Country: US (occurrence: US)
  Receive Date: 20230412
  Receipt Date: 20230412
  Transmission Date: 20230721
  Serious: Yes (Other)
  Sender: FDA-Public Use
  Company Number: US-009507513-2304USA002596

PATIENT
  Age: 39 Year
  Sex: Female

DRUGS (2)
  1. DIFICID [Suspect]
     Active Substance: FIDAXOMICIN
     Indication: Clostridium difficile infection
     Dosage: 200MG TABLET BY MOUTH TWICE DAILY
     Route: 048
     Dates: start: 202302
  2. FLAGYL [Suspect]
     Active Substance: METRONIDAZOLE\METRONIDAZOLE HYDROCHLORIDE
     Indication: Clostridium difficile infection

REACTIONS (3)
  - Clostridium difficile infection [Unknown]
  - Drug ineffective [Unknown]
  - Product availability issue [Unknown]
